FAERS Safety Report 6522607-8 (Version None)
Quarter: 2009Q4

REPORT INFORMATION
  Report Type: 
  Country: None (occurrence: None)
  Receive Date: 20091230
  Receipt Date: 20091218
  Transmission Date: 20100525
  Serious: Yes (Other)
  Sender: FDA-Public Use
  Company Number: PHEH2009US12472

PATIENT
  Sex: Female

DRUGS (1)
  1. EXELON [Suspect]
     Indication: DEMENTIA
     Dosage: 4.4 MG/24 HR
     Route: 062
     Dates: start: 20090811, end: 20091130

REACTIONS (4)
  - COGNITIVE DISORDER [None]
  - DIZZINESS [None]
  - FALL [None]
  - NAUSEA [None]
